FAERS Safety Report 24134946 (Version 2)
Quarter: 2024Q3

REPORT INFORMATION
  Report Type: Report from Study
  Country: IN (occurrence: IN)
  Receive Date: 20240725
  Receipt Date: 20240729
  Transmission Date: 20241016
  Serious: Yes (Death)
  Sender: ROCHE
  Company Number: IN-ROCHE-10000027672

PATIENT
  Age: 69 Year
  Sex: Female
  Weight: 49 kg

DRUGS (1)
  1. PHESGO [Suspect]
     Active Substance: HYALURONIDASE-ZZXF\PERTUZUMAB\TRASTUZUMAB
     Indication: Breast cancer
     Route: 065

REACTIONS (4)
  - Metastases to central nervous system [Fatal]
  - Amnesia [Unknown]
  - Dizziness [Unknown]
  - Vomiting [Unknown]

NARRATIVE: CASE EVENT DATE: 20240611
